FAERS Safety Report 11867802 (Version 2)
Quarter: 2016Q2

REPORT INFORMATION
  Report Type: Spontaneous
  Country: US (occurrence: US)
  Receive Date: 20151224
  Receipt Date: 20160406
  Transmission Date: 20160815
  Serious: Yes (Hospitalization, Other)
  Sender: FDA-Public Use
  Company Number: US-ASTRAZENECA-2015SF28212

PATIENT
  Age: 56 Year
  Sex: Male
  Weight: 109 kg

DRUGS (8)
  1. LIPITOR [Concomitant]
     Active Substance: ATORVASTATIN CALCIUM
  2. NEURONTIN [Concomitant]
     Active Substance: GABAPENTIN
     Route: 048
  3. BRILINTA [Suspect]
     Active Substance: TICAGRELOR
     Indication: ACUTE CORONARY SYNDROME
     Route: 048
     Dates: start: 201302
  4. COREG [Concomitant]
     Active Substance: CARVEDILOL
     Dosage: 1TABLET TWICE DAILY, WITH MORNING AND EVENING MEAL
     Route: 048
     Dates: start: 20150817
  5. ISORDIL [Concomitant]
     Active Substance: ISOSORBIDE DINITRATE
     Route: 048
  6. ECOTRIN [Concomitant]
     Active Substance: ASPIRIN
     Route: 048
  7. COUMADIN [Concomitant]
     Active Substance: WARFARIN SODIUM
     Dosage: HALF A TAB DAILY, EXCEPT TUESDAY/SATURDAY TAKE 1 TAB
     Route: 048
  8. GLUCOTROL XL [Concomitant]
     Active Substance: GLIPIZIDE
     Dosage: 1 TABLET DAILY WITH BREAKFAST
     Route: 048

REACTIONS (5)
  - Chest pain [Recovered/Resolved]
  - Cardiac failure congestive [Unknown]
  - Myocardial infarction [Unknown]
  - Dyspnoea [Unknown]
  - Neck mass [Unknown]

NARRATIVE: CASE EVENT DATE: 201302
